FAERS Safety Report 9525782 (Version 1)
Quarter: 2013Q1

REPORT INFORMATION
  Report Type: Spontaneous
  Country: US (occurrence: None)
  Receive Date: 20130314
  Receipt Date: 20130314
  Transmission Date: 20140127
  Serious: No
  Sender: FDA-Public Use
  Company Number: 1301USA004248

PATIENT
  Age: 66 Year
  Sex: Male

DRUGS (5)
  1. VICTRELIS (BOCEPREVIR) CAPSULE, 200MG [Suspect]
     Indication: CHRONIC HEPATITIS C
     Route: 048
     Dates: start: 201206, end: 201212
  2. RIBAVIRIN [Suspect]
     Indication: CHRONIC HEPATITIS C
     Route: 048
     Dates: start: 201206, end: 201212
  3. PEGASYS (PEGINTERFERON ALFA-2A) [Suspect]
     Dates: start: 201206, end: 201212
  4. CRESTOR [Concomitant]
  5. TESTOSTERONE (TESTOSTERONE) [Concomitant]

REACTIONS (4)
  - Balance disorder [None]
  - Disturbance in attention [None]
  - Heart rate increased [None]
  - Fatigue [None]
